FAERS Safety Report 16941262 (Version 1)
Quarter: 2019Q4

REPORT INFORMATION
  Report Type: Spontaneous
  Country: US (occurrence: US)
  Receive Date: 20191021
  Receipt Date: 20191021
  Transmission Date: 20200122
  Serious: Yes (Other)
  Sender: FDA-Public Use
  Company Number: US-FRESENIUS MEDICAL CARE RENAL THERAPIES GROUP-FMC-1910-001351

PATIENT
  Age: 64 Year
  Weight: 87 kg

DRUGS (12)
  1. PLAVIX [Concomitant]
     Active Substance: CLOPIDOGREL BISULFATE
     Dosage: 75 MG TABLET, TAKE ONE TABLET BY MOUTH ONCE A DAY AS DIRECTED
  2. GENTAMICIN. [Concomitant]
     Active Substance: GENTAMICIN
     Dosage: 0.1% CREAM?APPLY A SMALL AMOUNT TO THE AFFECTED AREA AS DIRECTED
  3. LOSARTAN. [Concomitant]
     Active Substance: LOSARTAN
     Dosage: 50 MG TABLET?TAKE 1 TABLET BY MOUTH AT BED TIME
  4. DELFLEX WITH DEXTROSE 1.5% LOW MAGNESIUM LOW CALCIUM [Suspect]
     Active Substance: CALCIUM CHLORIDE\DEXTROSE\MAGNESIUM CHLORIDE\SODIUM CHLORIDE\SODIUM LACTATE
     Indication: END STAGE RENAL DISEASE
     Dosage: 6 EXCHANGES, 2,500ML FILL VOLUME
     Route: 033
     Dates: start: 20170109
  5. DELFLEX WITH DEXTROSE 2.5% LOW MAGNESIUM LOW CALCIUM [Suspect]
     Active Substance: CALCIUM CHLORIDE\DEXTROSE\MAGNESIUM CHLORIDE\SODIUM CHLORIDE\SODIUM LACTATE
     Indication: END STAGE RENAL DISEASE
     Dosage: 6 EXCHANGES, 2500ML FILL VOLUMES
     Route: 033
     Dates: start: 20170109
  6. NOVOLOG [Concomitant]
     Active Substance: INSULIN ASPART
     Dosage: 100 UNIT/ML SOLUTION (INJECT)
  7. POTASSIUM CHLORIDE. [Concomitant]
     Active Substance: POTASSIUM CHLORIDE
     Dosage: ER 10 MEQ CAPSULE EXTENDED RELEASE, TAKE ONE CAPSULE BY MOUTH ONCE A DAY
  8. RENVELA [Concomitant]
     Active Substance: SEVELAMER CARBONATE
     Dosage: 800 MG TABLET?TAKE 2 TABLET BY MOUTH THREE TIMES A DAY WITH MEALS
  9. ATORVASTATIN [Concomitant]
     Active Substance: ATORVASTATIN
     Dosage: 80 MG TABLET?TAKE 1 TABLET BY MOUTH AT BED TIME?90 TABLET
  10. PROTONIX [Concomitant]
     Active Substance: PANTOPRAZOLE SODIUM
     Dosage: 40 MG TABLET DELAYED RESPONSE, ONE TABLE T BY MOUTH ONCE A DAY
  11. CALCITRIOL. [Concomitant]
     Active Substance: CALCITRIOL
     Dosage: 0.25 MCG CAPSULE?TAKE1 TABLET BY MOUTH ONCE A DAY AS DIRECTED
  12. SPIRONOLACTONE. [Concomitant]
     Active Substance: SPIRONOLACTONE
     Dosage: 25 MG TABLET, TAKE ONE TABLET BY MOUTH ONCE A DAY

REACTIONS (1)
  - Peritonitis bacterial [Recovering/Resolving]

NARRATIVE: CASE EVENT DATE: 20191009
